FAERS Safety Report 12265791 (Version 1)
Quarter: 2016Q2

REPORT INFORMATION
  Report Type: Spontaneous
  Country: US (occurrence: US)
  Receive Date: 20160413
  Receipt Date: 20160413
  Transmission Date: 20160815
  Serious: No
  Sender: FDA-Public Use
  Company Number: GXBR2016US000832

PATIENT
  Age: 57 Year
  Sex: Female
  Weight: 59.86 kg

DRUGS (3)
  1. NITROFURANTOIN CAPSULES USP [Suspect]
     Active Substance: NITROFURANTOIN
     Indication: CYSTITIS
     Dosage: 100 MG, BID
     Route: 048
     Dates: start: 20160229
  2. NAPROXEN. [Concomitant]
     Active Substance: NAPROXEN
     Dosage: UNK DF, UNK
  3. CLARITIN [Concomitant]
     Active Substance: LORATADINE
     Dosage: UNK DF, UNK

REACTIONS (2)
  - Abdominal pain upper [Not Recovered/Not Resolved]
  - Diarrhoea [Not Recovered/Not Resolved]

NARRATIVE: CASE EVENT DATE: 20160301
